FAERS Safety Report 9657907 (Version 2)
Quarter: 2013Q4

REPORT INFORMATION
  Report Type: Spontaneous
  Country: US (occurrence: None)
  Receive Date: 20131029
  Receipt Date: 20131108
  Transmission Date: 20140711
  Serious: Yes (Other)
  Sender: FDA-Public Use
  Company Number: AUR-APL-2013-08917

PATIENT
  Age: 87 Year
  Sex: Female
  Weight: 57.61 kg

DRUGS (1)
  1. ALENDRONIC ACID [Suspect]
     Indication: BONE DISORDER
     Dosage: (70 MG, 1 IN 1 WK), ORAL
     Route: 048

REACTIONS (7)
  - Paralysis [None]
  - Groin pain [None]
  - Arthralgia [None]
  - Back pain [None]
  - Abasia [None]
  - Pain in extremity [None]
  - Condition aggravated [None]
